FAERS Safety Report 7479601-2 (Version None)
Quarter: 2011Q2

REPORT INFORMATION
  Report Type: 
  Country: None (occurrence: None)
  Receive Date: 20110513
  Receipt Date: 20100110
  Transmission Date: 20111010
  Serious: Yes (Death, Hospitalization, Other)
  Sender: FDA-Public Use
  Company Number: US-BAYER-201010737NA

PATIENT
  Age: 53 Year
  Sex: Female
  Weight: 74.512 kg

DRUGS (36)
  1. TNKASE [Concomitant]
     Indication: ACUTE MYOCARDIAL INFARCTION
     Dosage: UNK
     Route: 042
     Dates: start: 20020217, end: 20020217
  2. OXYCONTIN [Concomitant]
     Dosage: 40 MG, BID
     Route: 048
  3. LASIX [Concomitant]
     Dosage: 80 MG, UNK
     Route: 042
     Dates: start: 20020221, end: 20020221
  4. ANCEF [Concomitant]
     Dosage: 1 G, Q8HRS
     Route: 042
     Dates: start: 20020219, end: 20020220
  5. REOPRO [Concomitant]
     Dosage: 21 ML/HR (7.2MG/3.6ML) X12 HOURSL
     Route: 042
     Dates: start: 20020218, end: 20020218
  6. PLATELETS [Concomitant]
     Dosage: 1 U, UNK
     Route: 042
     Dates: start: 20020221, end: 20020221
  7. HEXABRIX [Concomitant]
     Indication: CATHETERISATION CARDIAC
     Dosage: UNK DOSE, X2
     Route: 042
     Dates: start: 20020218, end: 20020218
  8. TRASYLOL [Suspect]
     Indication: MITRAL VALVE REPLACEMENT
     Dosage: 50 ML/HR (INFUSION)
     Route: 042
     Dates: end: 20020221
  9. AMBIEN [Concomitant]
     Dosage: 10 MG, HS PRN
     Route: 048
  10. FENTANYL [Concomitant]
     Dosage: UNK
     Dates: start: 20020221
  11. LASIX [Concomitant]
     Dosage: 80 MG, ONCE
     Route: 042
     Dates: start: 20020220, end: 20020220
  12. LEVAQUIN [Concomitant]
     Dosage: 500 MG, QD
     Route: 042
     Dates: start: 20020219
  13. EPINEPHRINE [Concomitant]
     Dosage: 50-300 ML/HR
     Route: 042
     Dates: start: 20020221
  14. DOPAMINE HCL [Concomitant]
     Dosage: 3-7 MCG/KG/MIN
     Route: 042
     Dates: start: 20020221
  15. DOBUTAMINE HYDROCHLORIDE [Concomitant]
     Dosage: 3-5 MCG/KG/MIN
     Route: 042
     Dates: start: 20020221
  16. PROTAMINE SULFATE [Concomitant]
     Dosage: 250 MG, UNK
     Route: 042
     Dates: start: 20020221, end: 20020221
  17. TRASYLOL [Suspect]
     Indication: CORONARY ARTERY BYPASS
     Dosage: 200 ML, ONCE (LOADING)
     Route: 042
     Dates: start: 20020221
  18. LASIX [Concomitant]
     Dosage: 40 MG, Q12HRS
     Route: 042
     Dates: start: 20020220
  19. CORDARONE [Concomitant]
     Dosage: 33 ML/HR
     Route: 042
     Dates: start: 20020221
  20. OPTIRAY 320 [IODINE,IOVERSOL] [Concomitant]
     Indication: ANGIOPLASTY
     Dosage: 200 ML, UNK
     Route: 042
     Dates: start: 20020219, end: 20020219
  21. OPTIRAY 320 [IODINE,IOVERSOL] [Concomitant]
     Indication: INTRA-AORTIC BALLOON PLACEMENT
  22. BETA BLOCKING AGENTS [Concomitant]
     Dosage: UNK
     Dates: start: 20020217
  23. PLAVIX [Concomitant]
     Dosage: 75 MG, ONCE
     Route: 048
     Dates: start: 20020219, end: 20020219
  24. NITROGLYCERIN [Concomitant]
     Dosage: 0.05 MCG/KG/HR
     Route: 042
     Dates: start: 20020221, end: 20020221
  25. SODIUM BICARBONATE [Concomitant]
     Dosage: 2 AMPS
     Route: 042
     Dates: start: 20020221, end: 20020221
  26. NEURONTIN [Concomitant]
     Dosage: 400 MG 1 TO 2 TABS BID
     Route: 048
  27. NEURONTIN [Concomitant]
     Dosage: 300 MG, HS
     Route: 048
  28. HEPARIN [Concomitant]
     Dosage: UNK
     Dates: start: 20020217
  29. HEPARIN [Concomitant]
     Dosage: 20000 U, UNK
     Route: 042
     Dates: start: 20020221, end: 20020221
  30. ACETYLSALICYLIC ACID SRT [Concomitant]
     Dosage: UNK
     Dates: start: 20020217
  31. VERSED [Concomitant]
     Dosage: UNK
     Route: 042
     Dates: start: 20020221
  32. INSULIN [INSULIN] [Concomitant]
     Dosage: 10-15 ML/HR
     Route: 042
     Dates: start: 20020221
  33. FRESH FROZEN PLASMA [Concomitant]
     Dosage: 2 U, UNK
     Route: 042
     Dates: start: 20020221, end: 20020221
  34. PLAVIX [Concomitant]
     Dosage: 300 MG, ONCE
     Route: 048
     Dates: start: 20020218, end: 20020218
  35. CALCIUM CHLORIDE [Concomitant]
     Dosage: 1 G, UNK
     Route: 042
     Dates: start: 20020221, end: 20020221
  36. ZINACEF [Concomitant]
     Dosage: 1.5 G, UNK
     Route: 042
     Dates: start: 20020221, end: 20020221

REACTIONS (11)
  - CEREBROVASCULAR ACCIDENT [None]
  - FEAR [None]
  - UNEVALUABLE EVENT [None]
  - DEATH [None]
  - ANXIETY [None]
  - ANHEDONIA [None]
  - PAIN [None]
  - DEPRESSION [None]
  - RENAL FAILURE [None]
  - MYOCARDIAL INFARCTION [None]
  - INJURY [None]
